FAERS Safety Report 4706973-1 (Version None)
Quarter: 2005Q3

REPORT INFORMATION
  Report Type: 
  Country: None (occurrence: None)
  Receive Date: 20050701
  Receipt Date: 20050622
  Transmission Date: 20060218
  Serious: Yes (Other)
  Sender: FDA-Public Use
  Company Number: 2005BH000274

PATIENT
  Age: 68 Year
  Sex: Male

DRUGS (8)
  1. CIPROFLOXACIN [Suspect]
     Dosage: 250 MG; ONCE
  2. GLYBURIDE [Concomitant]
  3. FUROSEMIDE [Concomitant]
  4. WARFARIN [Concomitant]
  5. FOSINOPRIL [Concomitant]
  6. CLOPIDOGREL BISULFATE [Concomitant]
  7. LOVASTATIN [Concomitant]
  8. METOPROLOL SUCCINATE [Concomitant]

REACTIONS (16)
  - BLOOD CHLORIDE DECREASED [None]
  - BLOOD CREATINE INCREASED [None]
  - BLOOD GLUCOSE INCREASED [None]
  - CONFUSIONAL STATE [None]
  - DRUG INTERACTION [None]
  - HAEMATOCRIT DECREASED [None]
  - HEART RATE DECREASED [None]
  - HEART RATE IRREGULAR [None]
  - HYPERHIDROSIS [None]
  - HYPOGLYCAEMIA [None]
  - INTERNATIONAL NORMALISED RATIO INCREASED [None]
  - KLEBSIELLA INFECTION [None]
  - LOSS OF CONSCIOUSNESS [None]
  - MENTAL STATUS CHANGES [None]
  - TREMOR [None]
  - URINARY TRACT INFECTION PSEUDOMONAL [None]
